FAERS Safety Report 25105165 (Version 1)
Quarter: 2025Q1

REPORT INFORMATION
  Report Type: Spontaneous
  Country: DE (occurrence: DE)
  Receive Date: 20250321
  Receipt Date: 20250321
  Transmission Date: 20250409
  Serious: Yes (Hospitalization)
  Sender: FRESENIUS KABI
  Company Number: DE-ROCHE-10000221930

PATIENT
  Age: 61 Year
  Sex: Male
  Weight: 82 kg

DRUGS (6)
  1. LEUCOVORIN [Suspect]
     Active Substance: LEUCOVORIN\LEUCOVORIN CALCIUM
     Indication: Gastrooesophageal cancer
     Route: 065
     Dates: start: 20250123
  2. OXALIPLATIN [Suspect]
     Active Substance: OXALIPLATIN
     Indication: Gastrooesophageal cancer
     Route: 065
     Dates: start: 20250123
  3. ATEZOLIZUMAB [Suspect]
     Active Substance: ATEZOLIZUMAB
     Indication: Gastrooesophageal cancer
     Route: 065
     Dates: start: 20250123
  4. DOCETAXEL [Suspect]
     Active Substance: DOCETAXEL
     Indication: Gastrooesophageal cancer
     Route: 065
     Dates: start: 20250123
  5. FLUOROURACIL [Suspect]
     Active Substance: FLUOROURACIL
     Indication: Gastrooesophageal cancer
     Route: 065
     Dates: start: 20250123
  6. decoderm cream [Concomitant]
     Indication: Product used for unknown indication

REACTIONS (1)
  - Palmar-plantar erythrodysaesthesia syndrome [Not Recovered/Not Resolved]

NARRATIVE: CASE EVENT DATE: 20250130
